FAERS Safety Report 16977039 (Version 1)
Quarter: 2019Q4

REPORT INFORMATION
  Report Type: Spontaneous
  Country: US (occurrence: US)
  Receive Date: 20190913
  Receipt Date: 20190913
  Transmission Date: 20200122
  Serious: Yes (Hospitalization)
  Sender: FDA-Public Use
  Company Number: None

PATIENT
  Age: 43 Year
  Sex: Male

DRUGS (15)
  1. FUROSEMIDE. [Concomitant]
     Active Substance: FUROSEMIDE
  2. K-TAB [Concomitant]
     Active Substance: POTASSIUM CHLORIDE
  3. VENTOLIN INHL BEB SOLN [Concomitant]
  4. METAMUCIL [Concomitant]
     Active Substance: PLANTAGO SEED
  5. COLACE [Concomitant]
     Active Substance: DOCUSATE SODIUM
  6. TADALAFIL. [Concomitant]
     Active Substance: TADALAFIL
  7. PREDNISONE. [Concomitant]
     Active Substance: PREDNISONE
  8. ATROVENT INHL SOLN [Concomitant]
  9. PANTOPRAZOLE [Concomitant]
     Active Substance: PANTOPRAZOLE
  10. LOVENOX [Concomitant]
     Active Substance: ENOXAPARIN SODIUM
  11. AMBRISENTAN  5MG TABLETS 30/BO: 5MG [Suspect]
     Active Substance: AMBRISENTAN
     Indication: PULMONARY ARTERIAL HYPERTENSION
     Route: 048
     Dates: start: 201908
  12. CELLCEPT [Concomitant]
     Active Substance: MYCOPHENOLATE MOFETIL\MYCOPHENOLATE MOFETIL HYDROCHLORIDE
  13. PERCOCET [Concomitant]
     Active Substance: ACETAMINOPHEN\OXYCODONE HYDROCHLORIDE
  14. SETPTRA DS [Concomitant]
  15. HYDROXYCHLOROQUINE [Concomitant]
     Active Substance: HYDROXYCHLOROQUINE

REACTIONS (2)
  - Acute respiratory failure [None]
  - Diastolic dysfunction [None]

NARRATIVE: CASE EVENT DATE: 20190904
